FAERS Safety Report 7265879-7 (Version None)
Quarter: 2011Q1

REPORT INFORMATION
  Report Type: 
  Country: None (occurrence: None)
  Receive Date: 20110131
  Receipt Date: 20110121
  Transmission Date: 20110831
  Serious: Yes (Hospitalization)
  Sender: FDA-Public Use
  Company Number: B0687426A

PATIENT
  Age: 57 Year
  Sex: Male

DRUGS (4)
  1. ZIAGEN [Concomitant]
     Indication: HIV INFECTION
     Dosage: 600MG PER DAY
     Route: 048
  2. KALETRA [Concomitant]
     Indication: HIV INFECTION
  3. EPIVIR [Suspect]
     Dosage: 50MG PER DAY
     Route: 048
  4. EPIVIR [Suspect]
     Indication: HIV INFECTION
     Dosage: 300MG PER DAY
     Route: 048

REACTIONS (1)
  - RENAL FAILURE ACUTE [None]
